FAERS Safety Report 23326835 (Version 1)
Quarter: 2023Q4

REPORT INFORMATION
  Report Type: Spontaneous
  Country: US (occurrence: US)
  Receive Date: 20231221
  Receipt Date: 20231221
  Transmission Date: 20240110
  Serious: No
  Sender: FDA-Public Use
  Company Number: US-LEO Pharma-366099

PATIENT
  Age: 48 Year
  Sex: Male

DRUGS (1)
  1. ADBRY [Suspect]
     Active Substance: TRALOKINUMAB-LDRM
     Indication: Dermatitis atopic
     Dosage: REPORTED AS ONGOING
     Route: 058
     Dates: start: 202307

REACTIONS (2)
  - Pain [Unknown]
  - Haemorrhage [Unknown]
